FAERS Safety Report 19392058 (Version 1)
Quarter: 2021Q2

REPORT INFORMATION
  Report Type: Spontaneous
  Country: SE (occurrence: DK)
  Receive Date: 20210608
  Receipt Date: 20210608
  Transmission Date: 20210717
  Serious: Yes (Other)
  Sender: FDA-Public Use
  Company Number: SE-PFIZER INC-2021597029

PATIENT
  Sex: Female

DRUGS (3)
  1. LEVETIRACETAM. [Suspect]
     Active Substance: LEVETIRACETAM
     Dosage: DURING 1ST TRIMESTER OF PREGNANCY
  2. CLOBAZAM. [Suspect]
     Active Substance: CLOBAZAM
     Dosage: 20 MG, 1X/DAY DURING 1ST TRIMESTER OF PREGNANCY
  3. LAMOTRIGINE. [Suspect]
     Active Substance: LAMOTRIGINE
     Dosage: DURING 1ST TRIMESTER OF PREGNANCY

REACTIONS (1)
  - Abortion spontaneous [Unknown]
